FAERS Safety Report 17686735 (Version 5)
Quarter: 2020Q4

REPORT INFORMATION
  Report Type: Report from Study
  Country: None (occurrence: GB)
  Receive Date: 20200421
  Receipt Date: 20201210
  Transmission Date: 20210113
  Serious: Yes (Congenital Anomaly, Other)
  Sender: FDA-Public Use
  Company Number: GB-ABBVIE-20K-167-3363800-00

PATIENT
  Sex: Male
  Weight: 2.86 kg

DRUGS (3)
  1. TRUVADA [Suspect]
     Active Substance: EMTRICITABINE\TENOFOVIR DISOPROXIL FUMARATE
     Indication: MATERNAL EXPOSURE TIMING UNSPECIFIED
     Route: 064
  2. REYATAZ [Suspect]
     Active Substance: ATAZANAVIR SULFATE
     Indication: MATERNAL EXPOSURE TIMING UNSPECIFIED
     Dosage: UNK UNK, DAILY, 300
     Route: 064
  3. RITONAVIR. [Suspect]
     Active Substance: RITONAVIR
     Indication: MATERNAL EXPOSURE TIMING UNSPECIFIED
     Dosage: UNK, DAILY,100
     Route: 064

REACTIONS (4)
  - Cranial sutures widening [Unknown]
  - Percussion test abnormal [Unknown]
  - Delayed fontanelle closure [Unknown]
  - Foetal exposure during pregnancy [Unknown]
